FAERS Safety Report 21198449 (Version 2)
Quarter: 2022Q3

REPORT INFORMATION
  Report Type: Spontaneous
  Country: US (occurrence: US)
  Receive Date: 20220811
  Receipt Date: 20220822
  Transmission Date: 20221027
  Serious: No
  Sender: FDA-Public Use
  Company Number: US-SA-SAC20220804001830

PATIENT
  Age: 88 Year
  Sex: Female

DRUGS (10)
  1. DUPIXENT [Suspect]
     Active Substance: DUPILUMAB
     Indication: Dermatitis atopic
     Dosage: 300 MG, QOW
     Route: 058
     Dates: start: 20190811
  2. DUPIXENT [Suspect]
     Active Substance: DUPILUMAB
     Indication: Eczema
  3. PROLIA [Concomitant]
     Active Substance: DENOSUMAB
  4. PREDNISOLONE [Concomitant]
     Active Substance: PREDNISOLONE
  5. FAMOTIDINE [Concomitant]
     Active Substance: FAMOTIDINE
  6. CLARITHROMYCIN [Concomitant]
     Active Substance: CLARITHROMYCIN
  7. AZITHROMYCIN [Concomitant]
     Active Substance: AZITHROMYCIN
  8. CLOBETASOL [Concomitant]
     Active Substance: CLOBETASOL
  9. VITAMIN D3 [Concomitant]
     Active Substance: CHOLECALCIFEROL
  10. MONTELUKAST SODIUM [Concomitant]
     Active Substance: MONTELUKAST SODIUM

REACTIONS (11)
  - Arthritis [Unknown]
  - Uterine polyp [Unknown]
  - Endometrial hyperplasia [Unknown]
  - Inflammation [Unknown]
  - Chest pain [Unknown]
  - Uterine mass [Unknown]
  - Joint injury [Unknown]
  - Abdominal distension [Unknown]
  - Blood pressure increased [Unknown]
  - Uterine leiomyoma [Unknown]
  - Rash [Unknown]

NARRATIVE: CASE EVENT DATE: 20220408
